FAERS Safety Report 4758430-4 (Version None)
Quarter: 2005Q3

REPORT INFORMATION
  Report Type: 
  Country: None (occurrence: None)
  Receive Date: 20050830
  Receipt Date: 20050830
  Transmission Date: 20060218
  Serious: Yes (Hospitalization)
  Sender: FDA-Public Use
  Company Number: None

PATIENT
  Age: 75 Year
  Sex: Male

DRUGS (11)
  1. DIGOXIN [Suspect]
     Indication: ATRIAL FIBRILLATION
     Dosage: 0.25MG  DAILY  PO  (LONG-TERM)
     Route: 048
  2. DUONEB [Concomitant]
  3. BACLOFEN [Concomitant]
  4. CLONAZEPAM [Concomitant]
  5. FERROUS SULFATE [Concomitant]
  6. FLONASE [Concomitant]
  7. FLOVET [Concomitant]
  8. FUROSEMIDE [Concomitant]
  9. ZYVOX [Concomitant]
  10. METOPROLOL XL [Concomitant]
  11. OXYBUTININ [Concomitant]

REACTIONS (7)
  - ANOREXIA [None]
  - ATRIAL FIBRILLATION [None]
  - BUNDLE BRANCH BLOCK LEFT [None]
  - DEHYDRATION [None]
  - RENAL FAILURE [None]
  - THERAPEUTIC AGENT TOXICITY [None]
  - VOMITING [None]
